FAERS Safety Report 6717642-0 (Version None)
Quarter: 2010Q2

REPORT INFORMATION
  Report Type: 
  Country: None (occurrence: None)
  Receive Date: 20100510
  Receipt Date: 20100219
  Transmission Date: 20101027
  Serious: No
  Sender: FDA-Public Use
  Company Number: A0845469A

PATIENT
  Sex: Female

DRUGS (1)
  1. ALTABAX [Suspect]

REACTIONS (5)
  - ADVERSE DRUG REACTION [None]
  - DISCOMFORT [None]
  - RASH [None]
  - RASH VESICULAR [None]
  - SWELLING [None]
